FAERS Safety Report 8140035-9 (Version None)
Quarter: 2012Q1

REPORT INFORMATION
  Report Type: 
  Country: None (occurrence: None)
  Receive Date: 20120215
  Receipt Date: 20120207
  Transmission Date: 20120608
  Serious: Yes (Hospitalization, Other)
  Sender: FDA-Public Use
  Company Number: US-ROXANE LABORATORIES, INC.-2012-RO-00616RO

PATIENT
  Age: 34 Year
  Sex: Male

DRUGS (5)
  1. PREDNISONE TAB [Suspect]
     Dosage: 10 MG
     Route: 048
     Dates: start: 20040101, end: 20050501
  2. MYCOPHENOLATE MOFETIL [Suspect]
     Dosage: 3 G
     Dates: start: 20040101, end: 20100401
  3. PREDNISONE TAB [Suspect]
     Indication: CHOROIDITIS
     Dosage: 80 MG
     Route: 048
     Dates: start: 20020101, end: 20030801
  4. PREDNISONE TAB [Suspect]
     Dosage: 60 MG
     Route: 048
     Dates: start: 20030801, end: 20040101
  5. MYCOPHENOLATE MOFETIL [Suspect]
     Indication: CHORIORETINOPATHY
     Dosage: 2 G
     Dates: start: 20030801, end: 20040101

REACTIONS (6)
  - CYTOMEGALOVIRUS COLITIS [None]
  - ORAL CANDIDIASIS [None]
  - CYTOMEGALOVIRUS VIRAEMIA [None]
  - CHORIORETINOPATHY [None]
  - CD4 LYMPHOCYTES DECREASED [None]
  - LEUKOPENIA [None]
